FAERS Safety Report 6508917-9 (Version None)
Quarter: 2009Q4

REPORT INFORMATION
  Report Type: 
  Country: None (occurrence: None)
  Receive Date: 20091221
  Receipt Date: 20090917
  Transmission Date: 20100525
  Serious: No
  Sender: FDA-Public Use
  Company Number: US-ASTRAZENECA-2009SE13874

PATIENT
  Age: 52 Year
  Sex: Male
  Weight: 72.6 kg

DRUGS (3)
  1. CRESTOR [Suspect]
     Route: 048
     Dates: start: 20060101
  2. AMARYL [Concomitant]
     Indication: DIABETES MELLITUS
  3. ACTOS [Concomitant]
     Indication: DIABETES MELLITUS

REACTIONS (3)
  - LIGAMENT RUPTURE [None]
  - MUSCLE RUPTURE [None]
  - MUSCLE STRAIN [None]
